FAERS Safety Report 19710659 (Version 3)
Quarter: 2021Q4

REPORT INFORMATION
  Report Type: Spontaneous
  Country: CA (occurrence: CA)
  Receive Date: 20210816
  Receipt Date: 20211004
  Transmission Date: 20220303
  Serious: Yes (Other)
  Sender: FDA-Public Use
  Company Number: CA-AKCEA THERAPEUTICS, INC.-2021IS001603

PATIENT
  Age: 33 Year
  Sex: Male
  Weight: 105.23 kg

DRUGS (7)
  1. TEGSEDI [Suspect]
     Active Substance: INOTERSEN SODIUM
     Indication: Hereditary neuropathic amyloidosis
     Route: 058
  2. DEVICE [Suspect]
     Active Substance: DEVICE
  3. GRAVOL [Suspect]
     Active Substance: DIMENHYDRINATE
     Route: 065
  4. DIFLUNISAL [Concomitant]
     Active Substance: DIFLUNISAL
     Route: 065
  5. OMEPRAZOLE [Concomitant]
     Active Substance: OMEPRAZOLE
     Route: 065
  6. RETINOL [Concomitant]
     Active Substance: RETINOL
     Route: 065
  7. GREEN TEA LEAF [Concomitant]
     Active Substance: GREEN TEA LEAF
     Route: 065

REACTIONS (15)
  - Nucleated red cells [Unknown]
  - Splenomegaly [Unknown]
  - Blood creatine phosphokinase increased [Unknown]
  - Fatigue [Unknown]
  - Haematocrit increased [Unknown]
  - Nausea [Unknown]
  - Platelet count decreased [Unknown]
  - Prealbumin decreased [Unknown]
  - Somnolence [Unknown]
  - Urticaria [Unknown]
  - Vitamin A decreased [Unknown]
  - Eosinophil count increased [Unknown]
  - Blood lactate dehydrogenase increased [Unknown]
  - Blood uric acid increased [Unknown]
  - Renal cyst [Unknown]
